FAERS Safety Report 8439514 (Version 3)
Quarter: 2013Q2

REPORT INFORMATION
  Report Type: Spontaneous
  Country: BR (occurrence: BR)
  Receive Date: 20120303
  Receipt Date: 20130502
  Transmission Date: 20140414
  Serious: Yes (Hospitalization, Other)
  Sender: FDA-Public Use
  Company Number: BR-AMGEN-BRASP2012012305

PATIENT
  Age: 57 Year
  Sex: Female
  Weight: 112 kg

DRUGS (10)
  1. ENBREL [Suspect]
     Indication: RHEUMATOID ARTHRITIS
     Dosage: 50 MG, WEEKLY
     Route: 058
     Dates: start: 201109
  2. ENBREL [Suspect]
     Indication: PSORIASIS
     Dosage: UNK
  3. ENBREL [Suspect]
     Indication: PSORIATIC ARTHROPATHY
     Dosage: 50 MG, QWK
     Route: 058
     Dates: start: 201209, end: 201211
  4. NPH INSULIN [Concomitant]
     Dosage: 80 UNIT, QD
  5. NPH INSULIN [Concomitant]
     Dosage: 80 IU/ DAY
  6. NPH INSULIN [Concomitant]
     Dosage: 50IU IN THE MORNING AND 48IU AT NIGHT
  7. LOSARTAN POTASSIUM [Concomitant]
     Dosage: 2 TABLETS OF (50/12.5MG) DAILY
  8. RIVOTRIL [Concomitant]
     Dosage: 2 MG, 1X/DAY
  9. METFORMIN [Concomitant]
     Dosage: 2 TABLETS OF 850MG DAILY
  10. JANUMET                            /06535301/ [Concomitant]
     Dosage: 1000 MG, 2X/DAY

REACTIONS (11)
  - Rheumatoid arthritis [Unknown]
  - Pain in extremity [Unknown]
  - Arthropathy [Unknown]
  - Decreased immune responsiveness [Unknown]
  - Gastric stapling [Recovering/Resolving]
  - Oesophagitis [Recovering/Resolving]
  - Spinal pain [Unknown]
  - Arthralgia [Unknown]
  - Lung infection [Unknown]
  - Psoriasis [Unknown]
  - Atypical pneumonia [Unknown]
